FAERS Safety Report 12775804 (Version 4)
Quarter: 2016Q4

REPORT INFORMATION
  Report Type: Report from Study
  Country: KR (occurrence: KR)
  Receive Date: 20160923
  Receipt Date: 20161122
  Transmission Date: 20170207
  Serious: Yes (Death, Hospitalization, Other)
  Sender: FDA-Public Use
  Company Number: PHHO2011KR024558

PATIENT
  Age: 66 Year
  Sex: Male
  Weight: 58 kg

DRUGS (3)
  1. COMPARATOR OXALIPLATIN [Suspect]
     Active Substance: OXALIPLATIN
     Indication: GASTRIC CANCER
     Dosage: 130 MG/M2, CYCLIC
     Route: 042
     Dates: start: 20101214, end: 20110519
  2. TYKERB [Suspect]
     Active Substance: LAPATINIB DITOSYLATE
     Indication: GASTRIC CANCER
     Dosage: 1250 MG, QD
     Route: 048
     Dates: start: 20101214, end: 20110721
  3. COMPARATOR CAPECITABINE [Suspect]
     Active Substance: CAPECITABINE
     Indication: GASTRIC CANCER
     Dosage: 1700 MG/M2, QD(DIVIDED INTO 2 DOSES PER DAY)
     Route: 048
     Dates: start: 20101214, end: 20110721

REACTIONS (3)
  - Pneumonitis [Not Recovered/Not Resolved]
  - Pneumonia [Fatal]
  - Pulmonary embolism [Recovered/Resolved]

NARRATIVE: CASE EVENT DATE: 20110715
